FAERS Safety Report 19402871 (Version 1)
Quarter: 2021Q2

REPORT INFORMATION
  Report Type: Spontaneous
  Country: CO (occurrence: CO)
  Receive Date: 20210611
  Receipt Date: 20210611
  Transmission Date: 20210717
  Serious: Yes (Death)
  Sender: FDA-Public Use
  Company Number: CO-TERSERA THERAPEUTICS LLC-2021TRS002739

PATIENT

DRUGS (1)
  1. ZOLADEX [Suspect]
     Active Substance: GOSERELIN ACETATE
     Indication: BREAST CANCER FEMALE
     Dosage: 3.6 MILLIGRAM, MONTHLY
     Route: 058
     Dates: start: 20180103

REACTIONS (1)
  - Death [Fatal]

NARRATIVE: CASE EVENT DATE: 20191110
